FAERS Safety Report 19786327 (Version 1)
Quarter: 2021Q3

REPORT INFORMATION
  Report Type: Spontaneous
  Country: US (occurrence: US)
  Receive Date: 20210903
  Receipt Date: 20210903
  Transmission Date: 20211014
  Serious: No
  Sender: FDA-Public Use
  Company Number: US-GW PHARMA-202108USGW04226

PATIENT

DRUGS (1)
  1. EPIDIOLEX [Suspect]
     Active Substance: CANNABIDIOL
     Indication: SEIZURE
     Dosage: 16.13 MG/KG/DAY, 300 MILLIGRAM, BID
     Route: 048
     Dates: start: 20201230

REACTIONS (2)
  - Weight increased [Unknown]
  - Product use in unapproved indication [Unknown]
